FAERS Safety Report 14292957 (Version 2)
Quarter: 2018Q2

REPORT INFORMATION
  Report Type: Spontaneous
  Country: US (occurrence: US)
  Receive Date: 20171215
  Receipt Date: 20180416
  Transmission Date: 20180711
  Serious: Yes (Other)
  Sender: FDA-Public Use
  Company Number: US-BAYER-2017-237372

PATIENT
  Age: 37 Year
  Sex: Female

DRUGS (5)
  1. MIRENA [Suspect]
     Active Substance: LEVONORGESTREL
     Dosage: 20 MCG/24HR, CONT
     Route: 015
     Dates: start: 20121205, end: 20170524
  2. LEVOTHYROXINE. [Concomitant]
     Active Substance: LEVOTHYROXINE
     Indication: THYROID DISORDER
     Dosage: 1.5 DF, QD
     Route: 048
     Dates: start: 2015
  3. DEPO-PROVERA [Suspect]
     Active Substance: MEDROXYPROGESTERONE ACETATE
     Indication: HEADACHE
     Dosage: UNK
     Route: 030
     Dates: start: 20170626
  4. DEPO-PROVERA [Suspect]
     Active Substance: MEDROXYPROGESTERONE ACETATE
     Indication: ABDOMINAL PAIN LOWER
     Dosage: UNK
     Route: 030
     Dates: start: 20170403, end: 20170927
  5. TEGRETOL [Concomitant]
     Active Substance: CARBAMAZEPINE
     Indication: SEIZURE
     Dosage: 100 MG, QD
     Route: 048

REACTIONS (5)
  - Drug ineffective [None]
  - Meningioma [None]
  - Visual impairment [None]
  - Headache [Recovered/Resolved]
  - Headache [None]

NARRATIVE: CASE EVENT DATE: 2016
